FAERS Safety Report 4743663-3 (Version None)
Quarter: 2005Q3

REPORT INFORMATION
  Report Type: 
  Country: None (occurrence: None)
  Receive Date: 20050812
  Receipt Date: 20050804
  Transmission Date: 20060218
  Serious: Yes (Hospitalization, Other)
  Sender: FDA-Public Use
  Company Number: US-ABBOTT-05P-163-0307663-00

PATIENT
  Age: 50 Year
  Sex: Female
  Weight: 81.72 kg

DRUGS (24)
  1. DEPAKOTE [Suspect]
     Indication: DRUG USE FOR UNKNOWN INDICATION
     Dates: start: 20030101
  2. BUPROPION HYDROCHLORIDE [Suspect]
     Indication: DEPRESSION
     Route: 048
     Dates: start: 20050530
  3. BUPROPION HYDROCHLORIDE [Suspect]
     Indication: BIPOLAR DISORDER
  4. LAMOTRIGINE [Suspect]
     Indication: DRUG USE FOR UNKNOWN INDICATION
  5. LITHIUM [Concomitant]
     Indication: DRUG USE FOR UNKNOWN INDICATION
  6. ACTOS [Concomitant]
     Indication: DRUG USE FOR UNKNOWN INDICATION
  7. GLIPIZIDE [Concomitant]
     Indication: DRUG USE FOR UNKNOWN INDICATION
  8. LEVOTHYROXINE SODIUM [Concomitant]
     Indication: DRUG USE FOR UNKNOWN INDICATION
  9. IRBESARTAN [Concomitant]
     Indication: DRUG USE FOR UNKNOWN INDICATION
  10. CLONAZEPAM [Concomitant]
     Indication: DRUG USE FOR UNKNOWN INDICATION
  11. ZOLPIDEM TARTRATE [Concomitant]
     Indication: DRUG USE FOR UNKNOWN INDICATION
  12. AMITRIPTYLINE HCL [Concomitant]
     Indication: DRUG USE FOR UNKNOWN INDICATION
  13. PROPRANOLOL HYDROCHLORIDE [Concomitant]
     Indication: DRUG USE FOR UNKNOWN INDICATION
  14. FLUOXETINE HCL [Concomitant]
     Indication: DRUG USE FOR UNKNOWN INDICATION
  15. VENLAFAXINE HCL [Concomitant]
     Indication: DRUG USE FOR UNKNOWN INDICATION
  16. ESTRADIOL [Concomitant]
     Indication: DRUG USE FOR UNKNOWN INDICATION
  17. CHOLESTYRAMINE [Concomitant]
     Indication: DRUG USE FOR UNKNOWN INDICATION
  18. IRBESARTAN [Concomitant]
  19. ZOLPIDEM TARTRATE [Concomitant]
  20. AMITRIPTYLINE HCL [Concomitant]
  21. PROPRANOLOL HYDROCHLORIDE [Concomitant]
  22. FLUOXETINE HCL [Concomitant]
  23. VENLAFAXINE HCL [Concomitant]
  24. OESTRADIOL [Concomitant]
     Indication: DRUG USE FOR UNKNOWN INDICATION

REACTIONS (7)
  - AGITATION [None]
  - ANXIETY [None]
  - DEPRESSION [None]
  - DRUG INEFFECTIVE [None]
  - HEPATOCELLULAR DAMAGE [None]
  - SOCIAL PHOBIA [None]
  - SUICIDAL IDEATION [None]
